FAERS Safety Report 4421504-1 (Version None)
Quarter: 2004Q3

REPORT INFORMATION
  Report Type: 
  Country: None (occurrence: None)
  Receive Date: 20040709
  Receipt Date: 20040209
  Transmission Date: 20050211
  Serious: Yes (Life-Threatening)
  Sender: FDA-Public Use
  Company Number: US-SHR-03-018599

PATIENT
  Age: 55 Year
  Sex: Female
  Weight: 71.2 kg

DRUGS (3)
  1. ULTRAVIST 300 [Suspect]
     Indication: COMPUTERISED TOMOGRAM
     Dosage: 115 ML, 1 DOSE, INTRAVENOUS
     Route: 042
     Dates: start: 20031112, end: 20031112
  2. FOSMAX / ITA (ALENDRONATE SODIUM) [Concomitant]
  3. MULTIVITAMIN [Concomitant]

REACTIONS (2)
  - NASAL CONGESTION [None]
  - SWELLING FACE [None]
